FAERS Safety Report 5446773-0 (Version None)
Quarter: 2007Q3

REPORT INFORMATION
  Report Type: 
  Country: None (occurrence: None)
  Receive Date: 20070907
  Receipt Date: 20070830
  Transmission Date: 20080115
  Serious: Yes (Hospitalization)
  Sender: FDA-Public Use
  Company Number: CH-PFIZER INC-2007072208

PATIENT
  Sex: Female

DRUGS (7)
  1. SORTIS [Suspect]
     Route: 048
  2. NITRODERM [Suspect]
     Indication: ESSENTIAL HYPERTENSION
     Route: 062
  3. DILATREND [Suspect]
     Route: 048
  4. ADALAT [Suspect]
     Route: 048
  5. RENITEN [Suspect]
     Route: 048
  6. ASPIRIN [Suspect]
     Route: 048
  7. LASIX [Concomitant]
     Route: 048

REACTIONS (5)
  - ANAPHYLACTIC REACTION [None]
  - BRONCHOSPASM [None]
  - HYPOTENSION [None]
  - STRIDOR [None]
  - URTICARIA [None]
